FAERS Safety Report 17591656 (Version 2)
Quarter: 2020Q2

REPORT INFORMATION
  Report Type: Report from Study
  Country: US (occurrence: US)
  Receive Date: 20200327
  Receipt Date: 20200407
  Transmission Date: 20200713
  Serious: Yes (Death)
  Sender: FDA-Public Use
  Company Number: US-MYLANLABS-2020M1032943

PATIENT
  Age: 28 Year
  Sex: Male

DRUGS (14)
  1. BUSULFAN. [Suspect]
     Active Substance: BUSULFAN
     Indication: BONE MARROW CONDITIONING REGIMEN
     Dosage: 2 DAYS OF PHARMACOKINETICALLY DOSED IV BUSULFAN WITH AN AREA UNDER THE CURVE TARGET OF 4600...
     Route: 042
  2. CYCLOPHOSPHAMIDE. [Suspect]
     Active Substance: CYCLOPHOSPHAMIDE
     Indication: BONE MARROW CONDITIONING REGIMEN
     Dosage: ON DAY -11 THROUGH DAY -8; DOSAGE CAP OF 200 MG/DAY
     Route: 065
  3. CYCLOPHOSPHAMIDE. [Suspect]
     Active Substance: CYCLOPHOSPHAMIDE
     Indication: PROPHYLAXIS AGAINST GRAFT VERSUS HOST DISEASE
  4. CYCLOPHOSPHAMIDE. [Suspect]
     Active Substance: CYCLOPHOSPHAMIDE
     Indication: BONE MARROW CONDITIONING REGIMEN
     Dosage: 50 MG/KG, QD
     Route: 042
  5. URSODIOL. [Concomitant]
     Active Substance: URSODIOL
     Indication: PROPHYLAXIS
     Dosage: ON DAYS -11 THROUGH +100
     Route: 065
  6. MESNA. [Concomitant]
     Active Substance: MESNA
     Indication: PROPHYLAXIS AGAINST GRAFT VERSUS HOST DISEASE
     Dosage: ON DAYS +3 AND +4
     Route: 042
  7. PENTOSTATIN. [Suspect]
     Active Substance: PENTOSTATIN
     Indication: BONE MARROW CONDITIONING REGIMEN
     Dosage: ON DAY -11 AND DAY -7
     Route: 042
  8. SIROLIMUS. [Suspect]
     Active Substance: SIROLIMUS
     Dosage: MAINTENANCE DOSE STARTING DAY +6, CONTINUED THROUGH DAY +180..
     Route: 048
  9. CYCLOPHOSPHAMIDE. [Suspect]
     Active Substance: CYCLOPHOSPHAMIDE
     Indication: PROPHYLAXIS AGAINST GRAFT VERSUS HOST DISEASE
  10. LEVETIRACETAM. [Concomitant]
     Active Substance: LEVETIRACETAM
     Indication: SEIZURE PROPHYLAXIS
     Dosage: ON DAYS THROUGH -4 TO -1
     Route: 048
  11. MYCOPHENOLATE MOFETIL. [Suspect]
     Active Substance: MYCOPHENOLATE MOFETIL
     Indication: PROPHYLAXIS AGAINST GRAFT VERSUS HOST DISEASE
     Dosage: ON DAYS +5 THROUGH +35; THREE TIMES DAILY, MAXIMUM 1000 MG/DOSE
     Route: 065
  12. SIROLIMUS. [Suspect]
     Active Substance: SIROLIMUS
     Indication: PROPHYLAXIS AGAINST GRAFT VERSUS HOST DISEASE
     Dosage: LOADING DOSE ON DAY +5
     Route: 048
  13. ACYCLOVIR                          /00587301/ [Concomitant]
     Active Substance: ACYCLOVIR
     Indication: PROPHYLAXIS
     Dosage: ON DAYS -11 THROUGH +2 YEARS
     Route: 065
  14. CLONAZEPAM. [Concomitant]
     Active Substance: CLONAZEPAM
     Indication: SEIZURE PROPHYLAXIS
     Dosage: ON DAYS THROUGH -4 TO -1
     Route: 048

REACTIONS (3)
  - Lower respiratory tract infection viral [Fatal]
  - Herpes simplex encephalitis [Fatal]
  - Venoocclusive liver disease [Fatal]
